FAERS Safety Report 7632359-6 (Version None)
Quarter: 2011Q3

REPORT INFORMATION
  Report Type: 
  Country: None (occurrence: None)
  Receive Date: 20110725
  Receipt Date: 20100813
  Transmission Date: 20111222
  Serious: No
  Sender: FDA-Public Use
  Company Number: US-BRISTOL-MYERS SQUIBB COMPANY-15241755

PATIENT
  Age: 53 Year
  Sex: Male

DRUGS (7)
  1. LIPITOR [Concomitant]
  2. OMEPRAZOLE [Concomitant]
  3. ASPIRIN [Concomitant]
  4. BENICAR [Concomitant]
  5. WARFARIN SODIUM [Suspect]
     Indication: ATRIAL FIBRILLATION
     Dosage: 1.5MG MONDAY,1MG(TUESDAY),1.5MG(WEDNESDAY),1MG(THURSDAY),1.5MG(FRIDAY),1MG(SATURDAY),1.5MG(SUNDAY)
     Route: 048
  6. CARDIZEM [Concomitant]
  7. PROPAFENONE HCL [Concomitant]

REACTIONS (2)
  - CONTUSION [None]
  - HAEMORRHAGE [None]
